FAERS Safety Report 19709722 (Version 1)
Quarter: 2021Q3

REPORT INFORMATION
  Report Type: Spontaneous
  Country: IT (occurrence: IT)
  Receive Date: 20210817
  Receipt Date: 20210817
  Transmission Date: 20211014
  Serious: Yes (Other)
  Sender: FDA-Public Use
  Company Number: IT-SA-2021SA220183

PATIENT
  Age: 34 Year
  Sex: Female

DRUGS (4)
  1. STILNOX [Suspect]
     Active Substance: ZOLPIDEM TARTRATE
     Indication: DRUG ABUSE
     Dosage: 1 DF, TOTAL
     Route: 048
     Dates: start: 20210518, end: 20210518
  2. LORAZEPAM. [Suspect]
     Active Substance: LORAZEPAM
     Indication: DRUG ABUSE
     Dosage: TOTAL 12 DF TOTAL
     Route: 048
     Dates: start: 20210518, end: 20210518
  3. LORAZEPAM. [Suspect]
     Active Substance: LORAZEPAM
     Indication: DRUG ABUSE
     Dosage: 12 DF
     Route: 048
     Dates: start: 20210518, end: 20210518
  4. QUETIAPINE FUMARATE. [Suspect]
     Active Substance: QUETIAPINE FUMARATE
     Indication: DRUG ABUSE
     Dosage: 300 MG, TOTAL
     Route: 048
     Dates: start: 20210518, end: 20210518

REACTIONS (4)
  - Bradyphrenia [Recovering/Resolving]
  - Intentional self-injury [Unknown]
  - Hypokinesia [Recovering/Resolving]
  - Drug abuse [Unknown]

NARRATIVE: CASE EVENT DATE: 20210518
